FAERS Safety Report 6066829-1 (Version None)
Quarter: 2009Q1

REPORT INFORMATION
  Report Type: 
  Country: None (occurrence: None)
  Receive Date: 20090205
  Receipt Date: 20090127
  Transmission Date: 20090719
  Serious: Yes (Other)
  Sender: FDA-Public Use
  Company Number: NO-ELI_LILLY_AND_COMPANY-NO200901004842

PATIENT
  Age: 47 Year
  Sex: Male

DRUGS (3)
  1. STRATTERA [Suspect]
     Indication: LEARNING DISABILITY
     Dosage: 25 MG, UNK
     Dates: start: 20081220
  2. STRATTERA [Suspect]
     Dosage: 1 D/F, UNK
  3. STRATTERA [Suspect]
     Dosage: 80 MG, UNK
     Dates: start: 20090126

REACTIONS (7)
  - ABDOMINAL DISCOMFORT [None]
  - CHEST PAIN [None]
  - CONVULSION [None]
  - DRY MOUTH [None]
  - HEART RATE INCREASED [None]
  - SLEEP DISORDER [None]
  - SUICIDAL IDEATION [None]
